FAERS Safety Report 10863548 (Version 2)
Quarter: 2015Q1

REPORT INFORMATION
  Report Type: Spontaneous
  Country: JP (occurrence: JP)
  Receive Date: 20150223
  Receipt Date: 20150303
  Transmission Date: 20150721
  Serious: Yes (Other)
  Sender: FDA-Public Use
  Company Number: JP-EISAI MEDICAL RESEARCH-EC-2015-004206

PATIENT
  Age: 83 Year
  Sex: Male

DRUGS (11)
  1. AIMIX [Concomitant]
     Active Substance: AMLODIPINE BESYLATE\IRBESARTAN
     Route: 048
  2. PLETAAL [Concomitant]
     Active Substance: CILOSTAZOL
     Route: 048
  3. BAYASPIRIN [Concomitant]
     Active Substance: ASPIRIN
     Route: 048
  4. THYRADIN S [Concomitant]
     Active Substance: LEVOTHYROXINE SODIUM
     Route: 048
  5. BIOFERMIN [Concomitant]
     Active Substance: BACILLUS SUBTILIS\LACTOBACILLUS ACIDOPHILUS\STREPTOCOCCUS FAECAIS
     Route: 048
  6. ARICEPT [Suspect]
     Active Substance: DONEPEZIL HYDROCHLORIDE
     Route: 048
     Dates: start: 20141127, end: 20150107
  7. OPALMON [Concomitant]
     Active Substance: LIMAPROST
  8. ARICEPT [Suspect]
     Active Substance: DONEPEZIL HYDROCHLORIDE
     Indication: DEMENTIA ALZHEIMER^S TYPE
     Route: 048
     Dates: start: 20141112, end: 20141126
  9. PARIET [Concomitant]
     Active Substance: RABEPRAZOLE SODIUM
     Indication: PROPHYLAXIS
     Route: 048
  10. SERMION [Concomitant]
     Active Substance: NICERGOLINE
     Route: 048
  11. JANUVIA [Concomitant]
     Active Substance: SITAGLIPTIN PHOSPHATE
     Route: 048

REACTIONS (1)
  - Psychomotor seizures [Recovered/Resolved]

NARRATIVE: CASE EVENT DATE: 20141214
